FAERS Safety Report 9054411 (Version 1)
Quarter: 2013Q1

REPORT INFORMATION
  Report Type: Spontaneous
  Country: US (occurrence: US)
  Receive Date: 20130208
  Receipt Date: 20130208
  Transmission Date: 20140127
  Serious: No
  Sender: FDA-Public Use
  Company Number: US-GLAXOSMITHKLINE-A0952536A

PATIENT
  Sex: Female
  Weight: 110.9 kg

DRUGS (5)
  1. PAXIL [Suspect]
     Route: 065
  2. ZOFRAN [Concomitant]
     Indication: HYPERAEMIA
  3. PHENERGAN [Concomitant]
     Indication: HYPERAEMIA
  4. REGLAN [Concomitant]
     Indication: HYPERAEMIA
  5. LANOXIN [Concomitant]
     Indication: TACHYCARDIA

REACTIONS (2)
  - Live birth [Unknown]
  - Exposure during pregnancy [Unknown]
